FAERS Safety Report 15306552 (Version 1)
Quarter: 2018Q3

REPORT INFORMATION
  Report Type: Spontaneous
  Country: US (occurrence: US)
  Receive Date: 20180810
  Receipt Date: 20180810
  Transmission Date: 20181010
  Serious: Yes (Life-Threatening, Hospitalization)
  Sender: FDA-Public Use
  Company Number: None

PATIENT
  Age: 54 Year
  Sex: Female
  Weight: 151.2 kg

DRUGS (2)
  1. FLONASE SENSIMIST ALLERGY RELIEF [Suspect]
     Active Substance: FLUTICASONE FUROATE
     Indication: HYPERSENSITIVITY
     Dosage: ?          QUANTITY:1 SPRAY(S);?
     Route: 055
     Dates: start: 20170819, end: 20170819
  2. ALEVE LIQUID GEL [Concomitant]

REACTIONS (3)
  - Pharyngeal oedema [None]
  - Swollen tongue [None]
  - Dyspnoea [None]

NARRATIVE: CASE EVENT DATE: 20170819
